FAERS Safety Report 8186328 (Version 4)
Quarter: 2013Q3

REPORT INFORMATION
  Report Type: Report from Study
  Country: US (occurrence: US)
  Receive Date: 20111018
  Receipt Date: 20130715
  Transmission Date: 20140515
  Serious: Yes (Life-Threatening, Hospitalization)
  Sender: FDA-Public Use
  Company Number: US-BRISTOL-MYERS SQUIBB COMPANY-16168155

PATIENT
  Age: 48 Year
  Sex: Male

DRUGS (7)
  1. GLIPIZIDE [Suspect]
     Indication: TYPE 2 DIABETES MELLITUS
  2. LEVEMIR [Suspect]
     Indication: TYPE 2 DIABETES MELLITUS
     Dosage: 1 DF : 10UNITS NOS
     Dates: start: 20110802
  3. PLACEBO [Suspect]
     Indication: TYPE 2 DIABETES MELLITUS
     Dates: start: 20100812
  4. COUMADIN [Suspect]
  5. VANCOMYCIN [Concomitant]
     Dates: start: 20100917
  6. RIFAMPIN [Concomitant]
     Dates: start: 20100917
  7. MINOCIN [Concomitant]
     Dates: start: 20101029

REACTIONS (2)
  - Gastric ulcer haemorrhage [Recovered/Resolved with Sequelae]
  - Anaemia [Recovering/Resolving]
